FAERS Safety Report 8038046-7 (Version None)
Quarter: 2012Q1

REPORT INFORMATION
  Report Type: 
  Country: None (occurrence: None)
  Receive Date: 20120111
  Receipt Date: 20120103
  Transmission Date: 20120608
  Serious: Yes (Life-Threatening, Hospitalization, Other)
  Sender: FDA-Public Use
  Company Number: US-RB-028126-11

PATIENT
  Age: 42 Year
  Sex: Male

DRUGS (3)
  1. SUBOXONE [Suspect]
     Indication: PRODUCT USED FOR UNKNOWN INDICATION
     Dosage: UNKNOWN DOSING INFORMATION
     Route: 065
  2. SUBOXONE [Suspect]
     Dosage: UNKNOWN DOSING DETAILS
     Route: 065
  3. SUBOXONE [Suspect]
     Indication: PRODUCT USED FOR UNKNOWN INDICATION
     Dosage: SUBLINGUAL FILM / UNKNOWN DOSING INFORMATION
     Route: 065

REACTIONS (11)
  - PANIC ATTACK [None]
  - FAECAL INCONTINENCE [None]
  - INSOMNIA [None]
  - TESTICULAR MASS [None]
  - DECREASED APPETITE [None]
  - URINARY INCONTINENCE [None]
  - DEPRESSION [None]
  - SUICIDE ATTEMPT [None]
  - DRUG DEPENDENCE [None]
  - DRUG WITHDRAWAL SYNDROME [None]
  - SUICIDAL IDEATION [None]
